FAERS Safety Report 4716590-5 (Version None)
Quarter: 2005Q3

REPORT INFORMATION
  Report Type: 
  Country: None (occurrence: None)
  Receive Date: 20050714
  Receipt Date: 20050630
  Transmission Date: 20060218
  Serious: Yes (Congenital Anomaly)
  Sender: FDA-Public Use
  Company Number: 8011017

PATIENT
  Sex: Male
  Weight: 1.65 kg

DRUGS (3)
  1. KEPPRA [Suspect]
     Indication: EPILEPSY
     Dosage: TRP
  2. KEPPRA [Suspect]
     Indication: EPILEPSY
     Dosage: TRM
  3. TEGRETOL [Suspect]
     Indication: EPILEPSY
     Dosage: TRP

REACTIONS (4)
  - ARTERIAL THROMBOSIS [None]
  - DRUG EXPOSURE DURING PREGNANCY [None]
  - TWIN PREGNANCY [None]
  - VENTRICULAR SEPTAL DEFECT [None]
